FAERS Safety Report 7443408-2 (Version None)
Quarter: 2011Q2

REPORT INFORMATION
  Report Type: 
  Country: None (occurrence: None)
  Receive Date: 20110428
  Receipt Date: 20110421
  Transmission Date: 20111010
  Serious: Yes (Life-Threatening, Hospitalization, Other)
  Sender: FDA-Public Use
  Company Number: JP-PFIZER INC-2011077161

PATIENT
  Age: 58 Year
  Sex: Female

DRUGS (7)
  1. BETAMAC [Concomitant]
     Dosage: UNK
  2. THYRADIN [Concomitant]
     Dosage: UNK
     Dates: start: 20070803
  3. CELECOX [Suspect]
     Indication: OSTEOARTHRITIS
     Dosage: 100 MG, 2X/DAY
     Route: 048
     Dates: start: 20101001, end: 20101101
  4. HALCION [Concomitant]
     Dosage: UNK
  5. TRYPTANOL [Suspect]
     Dosage: 1 TABLET THREE TIMES DAILY
     Route: 048
     Dates: start: 20110303, end: 20110324
  6. DEPAS [Concomitant]
     Dosage: UNK
     Dates: start: 20090828
  7. TIOSTAR [Concomitant]
     Dosage: UNK

REACTIONS (2)
  - THROMBOCYTOPENIA [None]
  - PALPITATIONS [None]
